FAERS Safety Report 23188603 (Version 1)
Quarter: 2023Q4

REPORT INFORMATION
  Report Type: Spontaneous
  Country: US (occurrence: US)
  Receive Date: 20231115
  Receipt Date: 20231115
  Transmission Date: 20240109
  Serious: No
  Sender: FDA-Public Use
  Company Number: US-PFIZER INC-202300361943

PATIENT
  Age: 63 Year
  Sex: Female

DRUGS (10)
  1. PAXLOVID [Suspect]
     Active Substance: NIRMATRELVIR\RITONAVIR
     Indication: COVID-19 treatment
     Dosage: UNK
     Dates: start: 20231026, end: 20231030
  2. METOPROLOL [Concomitant]
     Active Substance: METOPROLOL
     Dosage: BRAND=INGENUS
  3. LISINOPRIL [Concomitant]
     Active Substance: LISINOPRIL
     Dosage: BRAND=LUPIN
  4. ROSUVASTATIN [Concomitant]
     Active Substance: ROSUVASTATIN
     Dosage: BRAND=BIOCON
     Dates: end: 20231025
  5. LEVOTHYROXINE [Concomitant]
     Active Substance: LEVOTHYROXINE
     Dosage: BRAND=MYLAN
  6. ASPIRIN [Concomitant]
     Active Substance: ASPIRIN
     Dosage: BRAND=BAYER
  7. NORDIC NATURALS ULTIMATE OMEGA [Concomitant]
     Dosage: ULTIMATE OMEGA-D3
  8. NATURE^S BOUNTY CO Q 10 [Concomitant]
  9. NATURE MADE B-COMPLEX WITH VITAMIN C [Concomitant]
  10. BENEFIBER [Concomitant]
     Active Substance: STARCH, WHEAT
     Dosage: FIBER GUMMY

REACTIONS (2)
  - COVID-19 [Not Recovered/Not Resolved]
  - Disease recurrence [Not Recovered/Not Resolved]

NARRATIVE: CASE EVENT DATE: 20231109
